FAERS Safety Report 9365939 (Version 3)
Quarter: 2013Q3

REPORT INFORMATION
  Report Type: Spontaneous
  Country: US (occurrence: US)
  Receive Date: 20130625
  Receipt Date: 20130731
  Transmission Date: 20140515
  Serious: Yes (Other)
  Sender: FDA-Public Use
  Company Number: US-PFIZER INC-2013186642

PATIENT
  Age: 63 Year
  Sex: Female

DRUGS (5)
  1. NORVASC [Suspect]
     Dosage: 10 MG, DAILY
     Route: 048
  2. ASA [Concomitant]
     Dosage: UNK
  3. DYAZIDE [Concomitant]
     Dosage: UNK
  4. PRAVASTATIN [Concomitant]
     Dosage: UNK
  5. ZETIA [Concomitant]
     Dosage: UNK

REACTIONS (2)
  - Deafness neurosensory [Unknown]
  - Hearing impaired [Unknown]
